FAERS Safety Report 10223770 (Version 2)
Quarter: 2014Q4

REPORT INFORMATION
  Report Type: Spontaneous
  Country: US (occurrence: US)
  Receive Date: 20140609
  Receipt Date: 20141003
  Transmission Date: 20150528
  Serious: Yes (Hospitalization)
  Sender: FDA-Public Use
  Company Number: US-SA-2014SA072284

PATIENT
  Age: 32 Year
  Sex: Female

DRUGS (4)
  1. WELLBUTRIN [Concomitant]
     Active Substance: BUPROPION HYDROCHLORIDE
  2. FABRAZYME [Suspect]
     Active Substance: AGALSIDASE BETA
     Indication: FABRY^S DISEASE
     Route: 042
     Dates: start: 20050107, end: 2010
  3. REPLAGAL [Concomitant]
     Active Substance: AGALSIDASE ALFA
  4. FABRAZYME [Suspect]
     Active Substance: AGALSIDASE BETA
     Indication: FABRY^S DISEASE
     Route: 042
     Dates: start: 2011, end: 20140321

REACTIONS (6)
  - Muscle twitching [Unknown]
  - Tremor [Unknown]
  - Loss of consciousness [Unknown]
  - Seizure [Unknown]
  - Encephalopathy [Unknown]
  - Mental impairment [Unknown]

NARRATIVE: CASE EVENT DATE: 201405
